FAERS Safety Report 7108528-0 (Version None)
Quarter: 2010Q4

REPORT INFORMATION
  Report Type: 
  Country: None (occurrence: None)
  Receive Date: 20101117
  Receipt Date: 20100817
  Transmission Date: 20110411
  Serious: No
  Sender: FDA-Public Use
  Company Number: A0876340A

PATIENT
  Age: 74 Year
  Sex: Female

DRUGS (15)
  1. VOTRIENT [Suspect]
     Dosage: 800MG PER DAY
     Route: 048
     Dates: start: 20100806
  2. LEVOTHYROXINE [Concomitant]
  3. DEXAMETHASONE [Concomitant]
  4. AMIODARONE HCL [Concomitant]
  5. ATIVAN [Concomitant]
  6. ATENOLOL [Concomitant]
  7. DILANTIN [Concomitant]
  8. NEURONTIN [Concomitant]
  9. COUMADIN [Concomitant]
  10. PRAVASTATIN [Concomitant]
  11. CITALOPRAM HYDROBROMIDE [Concomitant]
  12. HYDROCODONE [Concomitant]
  13. BACTRIM [Concomitant]
  14. ZOFRAN [Concomitant]
  15. MORPHINE [Concomitant]

REACTIONS (1)
  - STAPHYLOCOCCAL INFECTION [None]
